FAERS Safety Report 6381059-1 (Version None)
Quarter: 2009Q3

REPORT INFORMATION
  Report Type: 
  Country: None (occurrence: None)
  Receive Date: 20090924
  Receipt Date: 20090917
  Transmission Date: 20100115
  Serious: Yes (Other)
  Sender: FDA-Public Use
  Company Number: 2009SP025775

PATIENT

DRUGS (2)
  1. REMERON [Suspect]
     Indication: DRUG USE FOR UNKNOWN INDICATION
     Dosage: 15 MG; PO; 7.5 MG; PO
     Route: 048
     Dates: start: 20090901
  2. REMERON [Suspect]
     Indication: DRUG USE FOR UNKNOWN INDICATION
     Dosage: 15 MG; PO; 7.5 MG; PO
     Route: 048
     Dates: start: 20090914

REACTIONS (5)
  - BLOOD PRESSURE DECREASED [None]
  - CHEST PAIN [None]
  - DYSPNOEA [None]
  - HEART RATE INCREASED [None]
  - THIRST [None]
